FAERS Safety Report 10021068 (Version 1)
Quarter: 2014Q1

REPORT INFORMATION
  Report Type: Spontaneous
  Country: CH (occurrence: CH)
  Receive Date: 20140319
  Receipt Date: 20140319
  Transmission Date: 20141002
  Serious: Yes (Death)
  Sender: FDA-Public Use
  Company Number: CH-ROCHE-1365948

PATIENT
  Age: 49 Year
  Sex: Female

DRUGS (1)
  1. KADCYLA [Suspect]
     Indication: BREAST CANCER
     Dosage: RECEIVED ONLY ONE INFUSION
     Route: 065

REACTIONS (1)
  - Disease progression [Fatal]
